FAERS Safety Report 6368190-1 (Version None)
Quarter: 2009Q3

REPORT INFORMATION
  Report Type: 
  Country: None (occurrence: None)
  Receive Date: 20090916
  Receipt Date: 20090916
  Transmission Date: 20100115
  Serious: Yes (Hospitalization)
  Sender: FDA-Public Use
  Company Number: None

PATIENT
  Sex: Male
  Weight: 85.9 kg

DRUGS (3)
  1. CARBOPLATIN [Suspect]
     Dosage: 1606 MG
  2. ERBITUX [Suspect]
     Dosage: 3710 MG
  3. TAXOL [Suspect]
     Dosage: 840 MG

REACTIONS (3)
  - OESOPHAGEAL FISTULA [None]
  - OESOPHAGEAL PERFORATION [None]
  - OESOPHAGEAL ULCER [None]
